FAERS Safety Report 12409967 (Version 2)
Quarter: 2016Q2

REPORT INFORMATION
  Report Type: Report from Study
  Country: JP (occurrence: JP)
  Receive Date: 20160527
  Receipt Date: 20160627
  Transmission Date: 20160815
  Serious: Yes (Hospitalization)
  Sender: FDA-Public Use
  Company Number: JP-BIOGEN-2016BI00241055

PATIENT
  Age: 37 Year
  Sex: Female
  Weight: 44 kg

DRUGS (23)
  1. REBAMIPIDE [Concomitant]
     Active Substance: REBAMIPIDE
     Indication: PROPHYLAXIS
     Route: 048
     Dates: start: 20140321
  2. BROTIZOLAM [Concomitant]
     Active Substance: BROTIZOLAM
     Indication: INSOMNIA
     Route: 048
     Dates: start: 20150206
  3. HIRUDOID [Concomitant]
     Active Substance: GLYCOSAMINOGLYCANS
     Indication: DRY SKIN PROPHYLAXIS
     Route: 062
     Dates: start: 20151021
  4. DEZOLAM [Concomitant]
     Active Substance: ETIZOLAM
     Indication: DEPRESSION
     Route: 048
     Dates: start: 20160427
  5. VOLTAREN [Concomitant]
     Active Substance: DICLOFENAC SODIUM
     Indication: TENOSYNOVITIS
     Route: 048
     Dates: start: 20130723
  6. LOXOPROFEN NA [Concomitant]
     Active Substance: LOXOPROFEN SODIUM
     Indication: MULTIPLE SCLEROSIS
     Route: 062
     Dates: start: 20140515
  7. POVIDONEIODINE [Concomitant]
     Indication: INFECTION PROPHYLAXIS
     Route: 049
     Dates: start: 20160101
  8. BIIB041 [Suspect]
     Active Substance: DALFAMPRIDINE
     Indication: MULTIPLE SCLEROSIS
     Route: 048
     Dates: start: 20150916
  9. FELBINAC [Concomitant]
     Active Substance: FELBINAC
     Indication: MULTIPLE SCLEROSIS
     Route: 062
     Dates: start: 20141112
  10. ALOSENN [Concomitant]
     Active Substance: SENNA LEAF
     Indication: MULTIPLE SCLEROSIS
     Route: 048
     Dates: start: 20110617
  11. ZOLPIDEM TARTRATE. [Concomitant]
     Active Substance: ZOLPIDEM TARTRATE
     Indication: INSOMNIA
     Route: 048
     Dates: start: 20150206
  12. BORRAZA-G [Concomitant]
     Active Substance: LIDOCAINE\TRIBENOSIDE
     Indication: HAEMORRHOIDS
     Route: 062
     Dates: start: 20151014
  13. RIZE [Concomitant]
     Active Substance: CLOTIAZEPAM
     Indication: DEPRESSION
     Route: 048
     Dates: start: 20160129
  14. BUFFERIN 330MG [Concomitant]
     Indication: DYSMENORRHOEA
     Route: 048
     Dates: start: 20160302
  15. LOXOPROFEN NA [Concomitant]
     Active Substance: LOXOPROFEN SODIUM
     Indication: TENOSYNOVITIS
  16. TYSABRI [Concomitant]
     Active Substance: NATALIZUMAB
     Indication: MULTIPLE SCLEROSIS
     Route: 042
     Dates: start: 20110720
  17. FEXOFENADINE HYDROCHLORIDE. [Concomitant]
     Active Substance: FEXOFENADINE HYDROCHLORIDE
     Indication: EMPYEMA
     Route: 048
     Dates: start: 20150312
  18. VITAMEDIN [Concomitant]
     Active Substance: CYANOCOBALAMIN\PYRIDOXINE HYDROCHLORIDE\THIAMINE
     Indication: MULTIPLE SCLEROSIS
     Route: 048
     Dates: start: 2004
  19. MIYA-BM [Concomitant]
     Active Substance: CLOSTRIDIUM BUTYRICUM SPORES STRAIN M-55
     Indication: MULTIPLE SCLEROSIS
     Route: 048
     Dates: start: 2004
  20. MUCOSAL [Concomitant]
     Indication: EMPYEMA
     Route: 048
     Dates: start: 20150428
  21. MOTONALIN [Concomitant]
     Active Substance: TIZANIDINE HYDROCHLORIDE
     Indication: MULTIPLE SCLEROSIS
     Route: 048
     Dates: start: 20140419
  22. ALFACALCIDOL [Concomitant]
     Active Substance: ALFACALCIDOL
     Indication: MULTIPLE SCLEROSIS
     Route: 048
     Dates: start: 20150910
  23. PAROXETINE. [Concomitant]
     Active Substance: PAROXETINE
     Indication: DEPRESSION
     Route: 048
     Dates: start: 20160129

REACTIONS (1)
  - Multiple sclerosis relapse [Recovered/Resolved]

NARRATIVE: CASE EVENT DATE: 20160520
